FAERS Safety Report 5032079-0 (Version None)
Quarter: 2006Q2

REPORT INFORMATION
  Report Type: 
  Country: None (occurrence: None)
  Receive Date: 20060619
  Receipt Date: 20060609
  Transmission Date: 20061013
  Serious: Yes (Death, Life-Threatening, Hospitalization, Other)
  Sender: FDA-Public Use
  Company Number: US200604002477

PATIENT
  Age: 85 Year
  Sex: Female
  Weight: 63.5 kg

DRUGS (10)
  1. CYMBALTA [Suspect]
     Indication: NEUROPATHY PERIPHERAL
     Dosage: 30 MG DAILY (1/D)
     Dates: start: 20050401, end: 20060410
  2. CYMBALTA [Suspect]
     Indication: PAIN
     Dosage: 30 MG DAILY (1/D)
     Dates: start: 20050401, end: 20060410
  3. XANAX [Concomitant]
  4. PERCOCET-5 (ACETYLSALICYLIC ACID, OXYCODONE HYDROCHLORIDE, OXYCODONE T [Concomitant]
  5. AVAPRO [Concomitant]
  6. POTASSIUM CHLORIDE [Concomitant]
  7. LASIX (POTASSIUM CHLORIDE) [Concomitant]
  8. LASIX (FUROSEMIDE, FUROSEMIDE SODIUM) [Concomitant]
  9. NEURONTIN [Concomitant]
  10. VITAMIN D [Concomitant]

REACTIONS (24)
  - ABNORMAL BEHAVIOUR [None]
  - AGITATION [None]
  - APHASIA [None]
  - ASCITES [None]
  - BLOOD GLUCOSE INCREASED [None]
  - BLOOD SODIUM DECREASED [None]
  - CARDIOMYOPATHY [None]
  - DEPRESSED LEVEL OF CONSCIOUSNESS [None]
  - DRUG TOXICITY [None]
  - FATIGUE [None]
  - HAEMATOCRIT DECREASED [None]
  - HEPATIC ENCEPHALOPATHY [None]
  - HEPATIC FAILURE [None]
  - HEPATITIS [None]
  - INTERNATIONAL NORMALISED RATIO INCREASED [None]
  - IRRITABILITY [None]
  - MENTAL STATUS CHANGES [None]
  - NAUSEA [None]
  - ORAL INTAKE REDUCED [None]
  - PLEURAL EFFUSION [None]
  - RENAL FAILURE [None]
  - RESTLESSNESS [None]
  - STOMACH DISCOMFORT [None]
  - WHITE BLOOD CELL COUNT INCREASED [None]
